FAERS Safety Report 18386414 (Version 5)
Quarter: 2020Q4

REPORT INFORMATION
  Report Type: Spontaneous
  Country: BR (occurrence: BR)
  Receive Date: 20201015
  Receipt Date: 20201215
  Transmission Date: 20210114
  Serious: Yes (Death, Other)
  Sender: FDA-Public Use
  Company Number: BR-ASTELLAS-2020US036095

PATIENT
  Age: 75 Year
  Sex: Male

DRUGS (2)
  1. XOSPATA [Suspect]
     Active Substance: GILTERITINIB
     Dosage: 80 MG, ONCE DAILY, (SECOND CYCLE)
     Route: 048
     Dates: start: 20201014
  2. XOSPATA [Suspect]
     Active Substance: GILTERITINIB
     Indication: ACUTE MYELOID LEUKAEMIA REFRACTORY
     Dosage: 120 MG, ONCE DAILY (1 CYCLE)
     Route: 048
     Dates: start: 20200909, end: 20201007

REACTIONS (6)
  - Acute myeloid leukaemia [Fatal]
  - Brain natriuretic peptide increased [Recovered/Resolved]
  - Blast cells present [Unknown]
  - Drug ineffective [Fatal]
  - Left ventricular dysfunction [Recovered/Resolved]
  - Ejection fraction decreased [Recovered/Resolved]

NARRATIVE: CASE EVENT DATE: 20200928
